FAERS Safety Report 18572736 (Version 1)
Quarter: 2020Q4

REPORT INFORMATION
  Report Type: Spontaneous
  Country: CN (occurrence: CN)
  Receive Date: 20201202
  Receipt Date: 20201202
  Transmission Date: 20210114
  Serious: Yes (Other)
  Sender: FDA-Public Use
  Company Number: CN-ROCHE-2724568

PATIENT
  Age: 56 Year
  Sex: Male

DRUGS (18)
  1. VINCRISTINE [Concomitant]
     Active Substance: VINCRISTINE
     Indication: DIFFUSE LARGE B-CELL LYMPHOMA
     Dosage: 29/MAR/2017 AND JUN/2017
     Dates: start: 20170329
  2. IBRUTINIB [Concomitant]
     Active Substance: IBRUTINIB
     Indication: DIFFUSE LARGE B-CELL LYMPHOMA
     Dates: start: 20180719
  3. GEMCITABINE. [Concomitant]
     Active Substance: GEMCITABINE
     Indication: DIFFUSE LARGE B-CELL LYMPHOMA
     Dosage: 24/OCT/2017, 14/NOV/2017 AND 21/JAN/2018
     Dates: start: 20171024
  4. LENALIDOMIDE [Concomitant]
     Active Substance: LENALIDOMIDE
     Dates: start: 20190130, end: 20190220
  5. IBRUTINIB [Concomitant]
     Active Substance: IBRUTINIB
     Dates: start: 20190424
  6. LENALIDOMIDE [Concomitant]
     Active Substance: LENALIDOMIDE
     Dates: start: 20190126
  7. IBRUTINIB [Concomitant]
     Active Substance: IBRUTINIB
     Dates: start: 20180809
  8. DOXORUBICIN [Concomitant]
     Active Substance: DOXORUBICIN
     Indication: DIFFUSE LARGE B-CELL LYMPHOMA
     Dosage: 29/MAR/2017 AND JUN/2017
     Dates: start: 20170329
  9. PREDNISONE. [Concomitant]
     Active Substance: PREDNISONE
     Indication: DIFFUSE LARGE B-CELL LYMPHOMA
     Dosage: 29/MAR/2017 AND JUN/2017
     Dates: start: 20170329
  10. LENALIDOMIDE [Concomitant]
     Active Substance: LENALIDOMIDE
     Indication: DIFFUSE LARGE B-CELL LYMPHOMA
     Dosage: 24/OCT/2017, 14/NOV/2017 AND 21/JAN/2018
  11. LENALIDOMIDE [Concomitant]
     Active Substance: LENALIDOMIDE
     Dates: start: 20180906
  12. IBRUTINIB [Concomitant]
     Active Substance: IBRUTINIB
     Dates: start: 20190619
  13. CYCLOPHOSPHAMIDE. [Concomitant]
     Active Substance: CYCLOPHOSPHAMIDE
     Indication: DIFFUSE LARGE B-CELL LYMPHOMA
     Dosage: 29/MAR/2017 AND JUN/2017
     Dates: start: 20170329
  14. LENALIDOMIDE [Concomitant]
     Active Substance: LENALIDOMIDE
     Dates: start: 20180809
  15. OXALIPLATIN. [Concomitant]
     Active Substance: OXALIPLATIN
     Indication: DIFFUSE LARGE B-CELL LYMPHOMA
     Dosage: 24/OCT/2017, 14/NOV/2017 AND 21/JAN/2018
     Dates: start: 20171024
  16. MABTHERA [Suspect]
     Active Substance: RITUXIMAB
     Indication: DIFFUSE LARGE B-CELL LYMPHOMA
     Dosage: 29/MAR/2017 AND JUN/2017
     Route: 065
     Dates: start: 20170329
  17. IBRUTINIB [Concomitant]
     Active Substance: IBRUTINIB
     Dates: start: 20180906, end: 20190126
  18. IBRUTINIB [Concomitant]
     Active Substance: IBRUTINIB
     Dates: start: 20190321

REACTIONS (4)
  - Generalised oedema [Unknown]
  - Lung opacity [Recovering/Resolving]
  - Atrial fibrillation [Unknown]
  - Myelosuppression [Unknown]
